FAERS Safety Report 16906780 (Version 1)
Quarter: 2019Q4

REPORT INFORMATION
  Report Type: Report from Study
  Country: US (occurrence: US)
  Receive Date: 20191011
  Receipt Date: 20191011
  Transmission Date: 20200122
  Serious: Yes (Hospitalization, Other)
  Sender: FDA-Public Use
  Company Number: US-ROCHE-2425587

PATIENT
  Age: 51 Year
  Sex: Female
  Weight: 89.4 kg

DRUGS (3)
  1. PEGYLATED LIPOSOMAL DOXORUBICIN [Suspect]
     Active Substance: DOXORUBICIN
     Indication: OVARIAN CANCER
     Dosage: ON 18/JUN/2019, LAST DOSE (82.4 MG) PRIOR TO SERIOUS ADVERSE EVENT.
     Route: 042
     Dates: start: 20190618
  2. ATEZOLIZUMAB. [Suspect]
     Active Substance: ATEZOLIZUMAB
     Indication: OVARIAN CANCER
     Dosage: ON 02/JUL/2019, LAST DOSE (1600 MG) PRIOR TO SERIOUS ADVERSE EVENT.
     Route: 042
     Dates: start: 20190618
  3. BEVACIZUMAB. [Suspect]
     Active Substance: BEVACIZUMAB
     Indication: OVARIAN CANCER
     Dosage: ON 02/JUL/2019, LAST DOSE (2000 MG) PRIOR TO SERIOUS ADVERSE EVENT.
     Route: 042
     Dates: start: 20190618

REACTIONS (2)
  - Urinary tract infection [Recovering/Resolving]
  - Embolism [Recovering/Resolving]

NARRATIVE: CASE EVENT DATE: 20190713
